FAERS Safety Report 6382011-2 (Version None)
Quarter: 2009Q3

REPORT INFORMATION
  Report Type: 
  Country: None (occurrence: None)
  Receive Date: 20090930
  Receipt Date: 20090916
  Transmission Date: 20100115
  Serious: Yes (Life-Threatening, Hospitalization)
  Sender: FDA-Public Use
  Company Number: NO-ASTRAZENECA-2009SE00575

PATIENT
  Age: 18 Year
  Sex: Male
  Weight: 139 kg

DRUGS (2)
  1. SEROQUEL [Suspect]
     Indication: MENTAL DISORDER
     Dosage: 300 MG IN THE MORNING, 600MG IN THE EVENING
     Route: 048
  2. CONCERTA [Suspect]
     Indication: ATTENTION DEFICIT/HYPERACTIVITY DISORDER
     Dosage: 36MG IN THE MORNING, 18MG IN THE EVENING
     Route: 048

REACTIONS (1)
  - CONGESTIVE CARDIOMYOPATHY [None]
